FAERS Safety Report 9029022 (Version 2)
Quarter: 2013Q1

REPORT INFORMATION
  Report Type: Spontaneous
  Country: TR (occurrence: TR)
  Receive Date: 20130122
  Receipt Date: 20130128
  Transmission Date: 20140127
  Serious: Yes (Other)
  Sender: FDA-Public Use
  Company Number: PHHY2013TR005651

PATIENT
  Age: 28 Year
  Sex: Male

DRUGS (2)
  1. GILENYA [Suspect]
     Dosage: UNK
     Route: 048
     Dates: end: 20130118
  2. NEURONTIN [Concomitant]
     Indication: ANALGESIC THERAPY

REACTIONS (2)
  - Blood creatine phosphokinase increased [Unknown]
  - Transaminases increased [Unknown]
